FAERS Safety Report 4337862-2 (Version None)
Quarter: 2004Q1

REPORT INFORMATION
  Report Type: 
  Country: None (occurrence: None)
  Receive Date: 20040326
  Receipt Date: 20040122
  Transmission Date: 20041129
  Serious: Yes (Life-Threatening, Hospitalization)
  Sender: FDA-Public Use
  Company Number: 2004UW01167

PATIENT
  Age: 72 Year
  Sex: Male

DRUGS (9)
  1. ZESTRIL [Suspect]
     Indication: VENTRICULAR DYSFUNCTION
     Dosage: 10 MG DAILY PO
     Route: 048
  2. PLACEBO [Suspect]
     Dosage: 400 MG DAILY PO
     Route: 048
     Dates: start: 20010214, end: 20010721
  3. COREG [Concomitant]
  4. HYTRIN [Concomitant]
  5. PLAVIX [Concomitant]
  6. PRILOSEC [Concomitant]
  7. ASPIRIN [Concomitant]
  8. ALEVE [Concomitant]
  9. PRAVASTATIN SODIUM [Suspect]
     Dosage: 40 MG DAILY PO
     Route: 048
     Dates: start: 20010122

REACTIONS (2)
  - BLOOD CREATININE INCREASED [None]
  - HYPERKALAEMIA [None]
